FAERS Safety Report 11204942 (Version 2)
Quarter: 2017Q1

REPORT INFORMATION
  Report Type: Spontaneous
  Country: US (occurrence: US)
  Receive Date: 20150622
  Receipt Date: 20170328
  Transmission Date: 20170428
  Serious: Yes (Other)
  Sender: FDA-Public Use
  Company Number: US-ELI_LILLY_AND_COMPANY-US201506006713

PATIENT
  Sex: Female

DRUGS (2)
  1. CYMBALTA [Suspect]
     Active Substance: DULOXETINE HYDROCHLORIDE
     Indication: INSOMNIA
  2. CYMBALTA [Suspect]
     Active Substance: DULOXETINE HYDROCHLORIDE
     Indication: STRESS
     Dosage: UNK
     Dates: start: 201403, end: 201405

REACTIONS (21)
  - Affect lability [Unknown]
  - Insomnia [Unknown]
  - Drug withdrawal syndrome [Unknown]
  - Agitation [Unknown]
  - Confusional state [Unknown]
  - Fatigue [Unknown]
  - Suicidal ideation [Unknown]
  - Dyspnoea [Unknown]
  - Paraesthesia [Unknown]
  - Tremor [Unknown]
  - Palpitations [Unknown]
  - Lethargy [Unknown]
  - Nausea [Unknown]
  - Chest pain [Unknown]
  - Hyperhidrosis [Unknown]
  - Irritability [Unknown]
  - Anxiety [Unknown]
  - Headache [Unknown]
  - Off label use [Unknown]
  - Sensory disturbance [Unknown]
  - Dysphoria [Unknown]
